FAERS Safety Report 8069324-3 (Version None)
Quarter: 2012Q1

REPORT INFORMATION
  Report Type: 
  Country: None (occurrence: None)
  Receive Date: 20120125
  Receipt Date: 20120117
  Transmission Date: 20120608
  Serious: Yes (Congenital Anomaly, Other)
  Sender: FDA-Public Use
  Company Number: JP-JNJFOC-20120108857

PATIENT
  Age: 7 Year

DRUGS (6)
  1. LEVOMEPROMAZINE [Suspect]
     Route: 064
  2. ZOLPIDEM TARTRATE [Suspect]
     Indication: FOETAL EXPOSURE DURING PREGNANCY
     Route: 064
     Dates: start: 20031201
  3. ZOLPIDEM TARTRATE [Suspect]
     Route: 064
  4. LEVOMEPROMAZINE [Suspect]
     Indication: FOETAL EXPOSURE DURING PREGNANCY
     Route: 064
     Dates: start: 20031201
  5. RISPERDAL [Suspect]
     Route: 064
     Dates: start: 20031201
  6. RISPERDAL [Suspect]
     Indication: FOETAL EXPOSURE DURING PREGNANCY
     Route: 064

REACTIONS (2)
  - ATTENTION DEFICIT/HYPERACTIVITY DISORDER [None]
  - AUTISM [None]
